FAERS Safety Report 4653229-1 (Version None)
Quarter: 2005Q2

REPORT INFORMATION
  Report Type: 
  Country: None (occurrence: None)
  Receive Date: 20050505
  Receipt Date: 20050422
  Transmission Date: 20051028
  Serious: Yes (Hospitalization)
  Sender: FDA-Public Use
  Company Number: FR-RB-1579-2005

PATIENT
  Age: 30 Year
  Sex: Female

DRUGS (1)
  1. BUPRENORPHINE HCL [Suspect]
     Indication: DRUG DEPENDENCE
     Dosage: DOSAGE UNKNOWN
     Route: 042
     Dates: start: 19960301

REACTIONS (11)
  - ABSCESS [None]
  - ASTHENIA [None]
  - CANDIDIASIS [None]
  - CYTOLYTIC HEPATITIS [None]
  - ENDOCARDITIS CANDIDA [None]
  - INTENTIONAL MISUSE [None]
  - LYMPHADENOPATHY [None]
  - LYMPHOPENIA [None]
  - RASH PUSTULAR [None]
  - SEPSIS [None]
  - WEIGHT DECREASED [None]
